FAERS Safety Report 5211733-1 (Version None)
Quarter: 2007Q1

REPORT INFORMATION
  Report Type: 
  Country: None (occurrence: None)
  Receive Date: 20070116
  Receipt Date: 20070103
  Transmission Date: 20070707
  Serious: Yes (Death)
  Sender: FDA-Public Use
  Company Number: HQWYE695207FEB06

PATIENT
  Age: 16 Year
  Sex: Male
  Weight: 82.63 kg

DRUGS (1)
  1. EFFEXOR XR [Suspect]

REACTIONS (18)
  - ANGER [None]
  - ANXIETY [None]
  - BUNDLE BRANCH BLOCK RIGHT [None]
  - COMPLETED SUICIDE [None]
  - CONDITION AGGRAVATED [None]
  - DRUG INEFFECTIVE [None]
  - EMOTIONAL DISTRESS [None]
  - FEELING OF DESPAIR [None]
  - GAIT DISTURBANCE [None]
  - HEADACHE [None]
  - INJURY [None]
  - INSOMNIA [None]
  - MENTAL DISORDER [None]
  - NAUSEA [None]
  - PAIN [None]
  - PHOTOPHOBIA [None]
  - STRESS [None]
  - SUICIDAL IDEATION [None]
